FAERS Safety Report 9768920 (Version 3)
Quarter: 2014Q4

REPORT INFORMATION
  Report Type: Spontaneous
  Country: JP (occurrence: JP)
  Receive Date: 20131218
  Receipt Date: 20141027
  Transmission Date: 20150529
  Serious: Yes (Other)
  Sender: FDA-Public Use
  Company Number: JP-AMGEN-JPNSP2013088350

PATIENT
  Age: 65 Year
  Sex: Male
  Weight: 78.9 kg

DRUGS (8)
  1. VECTIBIX [Suspect]
     Active Substance: PANITUMUMAB
     Indication: COLON CANCER
     Dosage: 480 MG, Q2WEEKS
     Route: 041
     Dates: start: 20110128, end: 20111216
  2. LOCOID [Concomitant]
     Active Substance: HYDROCORTISONE BUTYRATE
     Dosage: UNK
     Route: 062
     Dates: start: 20110128, end: 20110520
  3. GOSHAJINKIGAN [Concomitant]
     Active Substance: HERBALS
     Dosage: 1 DF, TID
     Route: 048
     Dates: start: 20101001, end: 20120126
  4. HIRUDOID                           /00723701/ [Concomitant]
     Dosage: UNK
     Route: 062
     Dates: start: 20110128, end: 20120120
  5. MYSER                              /01249201/ [Concomitant]
     Dosage: UNK
     Route: 062
     Dates: start: 20110128, end: 20110617
  6. MINOMYCIN [Concomitant]
     Active Substance: MINOCYCLINE HYDROCHLORIDE
     Dosage: 50 MG, TID
     Route: 048
     Dates: start: 20110603, end: 20120126
  7. VECTIBIX [Suspect]
     Active Substance: PANITUMUMAB
     Dosage: UNK
     Route: 041
     Dates: start: 20120919
  8. PYDOXAL [Concomitant]
     Active Substance: PYRIDOXAL
     Dosage: 30 MG, BID
     Route: 048
     Dates: start: 20091127, end: 20120126

REACTIONS (1)
  - Hypomagnesaemia [Unknown]

NARRATIVE: CASE EVENT DATE: 20120105
